FAERS Safety Report 6918970-6 (Version None)
Quarter: 2010Q3

REPORT INFORMATION
  Report Type: 
  Country: None (occurrence: None)
  Receive Date: 20100811
  Receipt Date: 20100805
  Transmission Date: 20110219
  Serious: Yes (Other)
  Sender: FDA-Public Use
  Company Number: BR-BRISTOL-MYERS SQUIBB COMPANY-15230337

PATIENT
  Age: 79 Year
  Sex: Female

DRUGS (5)
  1. APROZIDE [Suspect]
     Indication: HYPERTENSION
     Dosage: FORMULATION 150 MG ,1DF=1TAB DOSE NOT GIVEN
     Route: 048
     Dates: start: 20050101
  2. ATENOLOL [Concomitant]
     Indication: HYPERTENSION
     Dosage: 1DF=1TAB DOSE NOT GIVEN
     Dates: start: 20050101
  3. ADALAT [Concomitant]
     Indication: HYPERTENSION
     Dosage: FORMULATION 30 MG, 1DF=1TAB(NIGHT) DOSE NOT GIVEN
     Dates: start: 20080101
  4. ALPHAGAN [Concomitant]
     Indication: CATARACT
     Dates: start: 20080101
  5. XALATAN [Concomitant]
     Indication: CATARACT
     Dates: start: 20080101

REACTIONS (3)
  - CATARACT [None]
  - MUSCLE SPASMS [None]
  - POLLAKIURIA [None]
